FAERS Safety Report 24467373 (Version 1)
Quarter: 2024Q4

REPORT INFORMATION
  Report Type: Report from Study
  Country: US (occurrence: US)
  Receive Date: 20241018
  Receipt Date: 20241018
  Transmission Date: 20250115
  Serious: No
  Sender: ROCHE
  Company Number: US-ROCHE-3559353

PATIENT

DRUGS (2)
  1. XOLAIR [Suspect]
     Active Substance: OMALIZUMAB
     Indication: Product used for unknown indication
     Route: 065
  2. CLONIDINE [Concomitant]
     Active Substance: CLONIDINE

REACTIONS (6)
  - Mast cell activation syndrome [Unknown]
  - Autonomic nervous system imbalance [Unknown]
  - Erythema [Unknown]
  - Skin discolouration [Unknown]
  - Back pain [Unknown]
  - Peripheral swelling [Unknown]
